FAERS Safety Report 10194288 (Version 1)
Quarter: 2014Q2

REPORT INFORMATION
  Report Type: Spontaneous
  Country: US (occurrence: US)
  Receive Date: 20140526
  Receipt Date: 20140526
  Transmission Date: 20141212
  Serious: No
  Sender: FDA-Public Use
  Company Number: US-009507513-1405USA010253

PATIENT
  Sex: Male

DRUGS (2)
  1. NASONEX [Suspect]
     Indication: NASAL CONGESTION
     Route: 045
  2. ASTEPRO [Concomitant]
     Indication: RHINITIS

REACTIONS (1)
  - Drug ineffective for unapproved indication [Not Recovered/Not Resolved]
